FAERS Safety Report 7883355-5 (Version None)
Quarter: 2011Q4

REPORT INFORMATION
  Report Type: 
  Country: None (occurrence: None)
  Receive Date: 20111102
  Receipt Date: 20111102
  Transmission Date: 20120403
  Serious: Yes (Hospitalization)
  Sender: FDA-Public Use
  Company Number: None

PATIENT
  Age: 28 Year
  Sex: Female
  Weight: 56.699 kg

DRUGS (4)
  1. XANAX [Concomitant]
     Route: 048
  2. LAMICTAL [Concomitant]
     Route: 048
  3. CELEXA [Concomitant]
     Route: 048
  4. REMICADE [Suspect]
     Indication: CROHN'S DISEASE
     Dosage: FIRST DOSE
     Route: 041
     Dates: start: 20110818, end: 20110818

REACTIONS (8)
  - MYOSITIS [None]
  - PHARYNGITIS STREPTOCOCCAL [None]
  - PAIN IN EXTREMITY [None]
  - URTICARIA [None]
  - ANXIETY [None]
  - ARTHRALGIA [None]
  - MOVEMENT DISORDER [None]
  - EAR INFECTION [None]
